FAERS Safety Report 9709091 (Version 1)
Quarter: 2013Q4

REPORT INFORMATION
  Report Type: Report from Study
  Country: US (occurrence: US)
  Receive Date: 20131125
  Receipt Date: 20131125
  Transmission Date: 20140711
  Serious: Yes (Hospitalization, Other)
  Sender: FDA-Public Use
  Company Number: US-ABBVIE-13P-163-1170575-00

PATIENT
  Sex: Female
  Weight: 57.66 kg

DRUGS (2)
  1. HUMIRA [Suspect]
     Indication: RHEUMATOID ARTHRITIS
  2. ARAVA [Concomitant]
     Indication: RHEUMATOID ARTHRITIS

REACTIONS (5)
  - Bunion [Recovered/Resolved]
  - Pyrexia [Recovered/Resolved]
  - Pain in extremity [Recovered/Resolved]
  - Osteomyelitis [Recovered/Resolved]
  - Rash [Recovered/Resolved]
